FAERS Safety Report 16049489 (Version 1)
Quarter: 2019Q1

REPORT INFORMATION
  Report Type: Spontaneous
  Country: US (occurrence: US)
  Receive Date: 20190307
  Receipt Date: 20190307
  Transmission Date: 20190418
  Serious: No
  Sender: FDA-Public Use
  Company Number: US-NEXGEN PHARMA, INC.-2063705

PATIENT
  Sex: Female
  Weight: 54.55 kg

DRUGS (1)
  1. POLYETHYLENE GLYCOL 3350 NF POWDER [Suspect]
     Active Substance: POLYETHYLENE GLYCOL 3350
     Indication: CONSTIPATION
     Route: 048

REACTIONS (1)
  - Diarrhoea [Unknown]
